FAERS Safety Report 24293436 (Version 2)
Quarter: 2024Q3

REPORT INFORMATION
  Report Type: Spontaneous
  Country: BR (occurrence: None)
  Receive Date: 20240906
  Receipt Date: 20240916
  Transmission Date: 20241016
  Serious: Yes (Other)
  Sender: ASTRAZENECA
  Company Number: 2024A199535

PATIENT
  Sex: Male

DRUGS (10)
  1. LOKELMA [Suspect]
     Active Substance: SODIUM ZIRCONIUM CYCLOSILICATE
     Indication: Chronic kidney disease
     Dosage: USING MONDAY, WEDNESDAY AND FRIDAY5.0MG UNKNOWN
     Route: 048
     Dates: start: 20240601
  2. LOKELMA [Suspect]
     Active Substance: SODIUM ZIRCONIUM CYCLOSILICATE
     Indication: Blood potassium increased
     Dosage: USING MONDAY, WEDNESDAY AND FRIDAY5.0MG UNKNOWN
     Route: 048
     Dates: start: 20240601
  3. CALCIUM PANTOTHENATE\CYANOCOBALAMIN\NIACINAMIDE\PYRIDOXINE HYDROCHLORI [Concomitant]
     Active Substance: CALCIUM PANTOTHENATE\CYANOCOBALAMIN\NIACINAMIDE\PYRIDOXINE HYDROCHLORIDE\RIBOFLAVIN\THIAMINE MONONIT
  4. FOLIC ACID [Concomitant]
     Active Substance: FOLIC ACID
  5. ALLOPURINOL [Concomitant]
     Active Substance: ALLOPURINOL
  6. BISOPROLOL [Concomitant]
     Active Substance: BISOPROLOL\BISOPROLOL FUMARATE
     Dosage: 1.25
  7. CINACALCET [Concomitant]
     Active Substance: CINACALCET
  8. ALPHAEPOETIN [Concomitant]
     Dosage: 3 TIMES AFTER HEMODIALYSIS
  9. PARICALCYTOL [Concomitant]
  10. FERRUPURUM [Concomitant]

REACTIONS (9)
  - Neoplasm malignant [Unknown]
  - Hyperkalaemia [Unknown]
  - Failure to thrive [Not Recovered/Not Resolved]
  - Malaise [Not Recovered/Not Resolved]
  - Movement disorder [Not Recovered/Not Resolved]
  - Hypertension [Recovered/Resolved]
  - Drug ineffective [Not Recovered/Not Resolved]
  - Product availability issue [Unknown]
  - Extra dose administered [Unknown]

NARRATIVE: CASE EVENT DATE: 20240824
